FAERS Safety Report 9781893 (Version 1)
Quarter: 2013Q4

REPORT INFORMATION
  Report Type: Report from Study
  Country: None (occurrence: KR)
  Receive Date: 20131225
  Receipt Date: 20131225
  Transmission Date: 20140711
  Serious: Yes (Other)
  Sender: FDA-Public Use
  Company Number: KR-ACCORD-020953

PATIENT
  Sex: 0

DRUGS (2)
  1. ETOPOSIDE [Suspect]
     Indication: CERVIX CARCINOMA STAGE I
     Route: 042
  2. CISPLATIN [Suspect]
     Indication: CERVIX CARCINOMA STAGE I
     Route: 011

REACTIONS (1)
  - Cardiotoxicity [Unknown]
